FAERS Safety Report 7299231-5 (Version None)
Quarter: 2011Q1

REPORT INFORMATION
  Report Type: 
  Country: None (occurrence: None)
  Receive Date: 20110217
  Receipt Date: 20110210
  Transmission Date: 20110831
  Serious: Yes (Other)
  Sender: FDA-Public Use
  Company Number: CA-MERCK-1102USA01333

PATIENT
  Age: 19 Year
  Sex: Male
  Weight: 63 kg

DRUGS (2)
  1. PROSCAR [Suspect]
     Route: 048
  2. BUSPAR [Concomitant]
     Route: 065

REACTIONS (16)
  - ORGANIC ERECTILE DYSFUNCTION [None]
  - ANHEDONIA [None]
  - ANXIETY [None]
  - ERECTILE DYSFUNCTION [None]
  - SEXUAL DYSFUNCTION [None]
  - COGNITIVE DISORDER [None]
  - DEHYDROEPIANDROSTERONE DECREASED [None]
  - EJACULATION FAILURE [None]
  - HOT FLUSH [None]
  - TESTICULAR PAIN [None]
  - SCROTAL DISORDER [None]
  - DEPRESSION [None]
  - LETHARGY [None]
  - PENILE SIZE REDUCED [None]
  - LIBIDO DECREASED [None]
  - MALE ORGASMIC DISORDER [None]
